FAERS Safety Report 7621961-3 (Version None)
Quarter: 2011Q3

REPORT INFORMATION
  Report Type: 
  Country: None (occurrence: None)
  Receive Date: 20110720
  Receipt Date: 20101216
  Transmission Date: 20111222
  Serious: Yes (Hospitalization)
  Sender: FDA-Public Use
  Company Number: CH-BAYER-2010-005070

PATIENT
  Age: 66 Year
  Sex: Female

DRUGS (11)
  1. AMITRIPTYLINE HCL [Concomitant]
  2. CITALOPRAM HYDROBROMIDE [Suspect]
     Dosage: 30 MG, UNK
  3. METOPROLOL TARTRATE [Concomitant]
  4. EUTHYROX [Concomitant]
  5. CLOZAPINE [Concomitant]
  6. AKINETON [Concomitant]
  7. ASPIRIN [Suspect]
     Dosage: 100 MG, QD
     Route: 048
     Dates: start: 20101001
  8. PRASUGREL [Suspect]
     Dosage: 10 MG, QD
     Route: 048
     Dates: start: 20101001
  9. DANCOR [Concomitant]
  10. PANTOPRAZOLE [Concomitant]
  11. TRUXAL [Concomitant]

REACTIONS (1)
  - EPISTAXIS [None]
